FAERS Safety Report 22051787 (Version 3)
Quarter: 2023Q2

REPORT INFORMATION
  Report Type: Report from Study
  Country: CO (occurrence: CO)
  Receive Date: 20230302
  Receipt Date: 20230504
  Transmission Date: 20230721
  Serious: Yes (Hospitalization, Other)
  Sender: FDA-Public Use
  Company Number: CO-ABBVIE-4146045

PATIENT
  Sex: Female
  Weight: 79 kg

DRUGS (3)
  1. HUMIRA [Suspect]
     Active Substance: ADALIMUMAB
     Indication: Hidradenitis
     Route: 058
     Dates: start: 20201009, end: 20220630
  2. LIRAGLUTIDE [Suspect]
     Active Substance: LIRAGLUTIDE
     Indication: Weight decreased
     Route: 058
     Dates: end: 202206
  3. SPIRONOLACTONE DC [Concomitant]
     Indication: Skin disorder
     Dosage: 1 TABLET
     Dates: start: 2020

REACTIONS (8)
  - Loss of consciousness [Recovering/Resolving]
  - Emotional disorder [Not Recovered/Not Resolved]
  - Syncope [Not Recovered/Not Resolved]
  - Exercise lack of [Not Recovered/Not Resolved]
  - Abnormal behaviour [Recovering/Resolving]
  - Muscular weakness [Not Recovered/Not Resolved]
  - Fall [Not Recovered/Not Resolved]
  - Epilepsy [Not Recovered/Not Resolved]

NARRATIVE: CASE EVENT DATE: 20210101
